FAERS Safety Report 5060281-0 (Version None)
Quarter: 2006Q3

REPORT INFORMATION
  Report Type: 
  Country: None (occurrence: None)
  Receive Date: 20060720
  Receipt Date: 20060704
  Transmission Date: 20061208
  Serious: Yes (Life-Threatening)
  Sender: FDA-Public Use
  Company Number: 226531

PATIENT
  Age: 52 Year
  Sex: Female

DRUGS (2)
  1. AVASTIN [Suspect]
     Indication: GASTROINTESTINAL CARCINOMA
  2. CHEMOTHERAPY [Concomitant]

REACTIONS (2)
  - NEPHROTIC SYNDROME [None]
  - PULMONARY HAEMORRHAGE [None]
